FAERS Safety Report 15478626 (Version 1)
Quarter: 2018Q4

REPORT INFORMATION
  Report Type: Spontaneous
  Country: JP (occurrence: JP)
  Receive Date: 20181009
  Receipt Date: 20181009
  Transmission Date: 20190205
  Serious: Yes (Other)
  Sender: FDA-Public Use
  Company Number: JP-SA-2018SA277427

PATIENT
  Sex: Male

DRUGS (3)
  1. LEVOFLOXACIN. [Suspect]
     Active Substance: LEVOFLOXACIN
     Indication: LEPROSY
     Dosage: 200 MG, QD
     Route: 065
  2. RIFAMPICIN [Suspect]
     Active Substance: RIFAMPIN
     Indication: LEPROSY
     Route: 065
  3. DIAPHENYLSULFONE [Suspect]
     Active Substance: DAPSONE
     Indication: LEPROSY

REACTIONS (7)
  - Pyrexia [Recovered/Resolved]
  - Multiple-drug resistance [Recovered/Resolved]
  - Skin ulcer [Recovered/Resolved]
  - Type 2 lepra reaction [Recovered/Resolved]
  - Iritis [Recovered/Resolved]
  - Leprosy [Recovered/Resolved]
  - Disease recurrence [Recovered/Resolved]
